FAERS Safety Report 6899140-7 (Version None)
Quarter: 2010Q3

REPORT INFORMATION
  Report Type: 
  Country: None (occurrence: None)
  Receive Date: 20100802
  Receipt Date: 20080114
  Transmission Date: 20110219
  Serious: No
  Sender: FDA-Public Use
  Company Number: US-PFIZER INC-2008004494

PATIENT
  Sex: Female
  Weight: 63.6 kg

DRUGS (9)
  1. LYRICA [Suspect]
     Indication: FIBROMYALGIA
     Dates: start: 20061101, end: 20070601
  2. THYROID TAB [Concomitant]
  3. BUPRENORPHINE HCL AND NALOXONE HCL [Concomitant]
  4. PROZAC [Concomitant]
  5. TOPAMAX [Concomitant]
  6. ALL OTHER THERAPEUTIC PRODUCTS [Concomitant]
  7. ALL OTHER THERAPEUTIC PRODUCTS [Concomitant]
  8. FLEXERIL [Concomitant]
  9. XANAX [Concomitant]

REACTIONS (3)
  - SWELLING [None]
  - VISUAL IMPAIRMENT [None]
  - WEIGHT INCREASED [None]
